FAERS Safety Report 5597628-2 (Version None)
Quarter: 2008Q1

REPORT INFORMATION
  Report Type: 
  Country: None (occurrence: None)
  Receive Date: 20080121
  Receipt Date: 20080108
  Transmission Date: 20080703
  Serious: Yes (Hospitalization)
  Sender: FDA-Public Use
  Company Number: US-ELI_LILLY_AND_COMPANY-US200709005124

PATIENT
  Sex: Male
  Weight: 83.9 kg

DRUGS (4)
  1. OLANZAPINE [Suspect]
     Indication: DEPRESSION
     Dosage: 10 MG, UNK
     Dates: start: 19981014, end: 19990112
  2. OLANZAPINE [Suspect]
     Dosage: 5 MG, UNK
     Dates: start: 19981022, end: 19990120
  3. OLANZAPINE [Suspect]
     Dosage: 5 MG, UNK
     Dates: start: 19990409, end: 19990509
  4. TRILAFON [Concomitant]
     Dates: start: 19980605

REACTIONS (3)
  - DIABETES MELLITUS [None]
  - HYPERTENSION [None]
  - MYOCARDIAL INFARCTION [None]
